FAERS Safety Report 4877307-7 (Version None)
Quarter: 2006Q1

REPORT INFORMATION
  Report Type: 
  Country: None (occurrence: None)
  Receive Date: 20060109
  Receipt Date: 20060102
  Transmission Date: 20060701
  Serious: Yes (Hospitalization)
  Sender: FDA-Public Use
  Company Number: 2006000726

PATIENT
  Age: 78 Year
  Sex: Male

DRUGS (2)
  1. ALDACTONE [Suspect]
     Indication: ILL-DEFINED DISORDER
     Dosage: 50 MG (50 MG, EVERY DAY), ORAL
     Route: 048
     Dates: start: 20051005, end: 20051106
  2. FUROSEMIDE [Suspect]
     Indication: ILL-DEFINED DISORDER
     Dosage: 375 MG (500 MG, EVERY DAY), ORAL
     Route: 048
     Dates: start: 20051005, end: 20051106

REACTIONS (9)
  - ASCITES [None]
  - BLOOD CREATININE INCREASED [None]
  - BLOOD POTASSIUM INCREASED [None]
  - DEHYDRATION [None]
  - DISORIENTATION [None]
  - ENCEPHALOPATHY [None]
  - FALL [None]
  - HYPOKALAEMIA [None]
  - OEDEMA PERIPHERAL [None]
